FAERS Safety Report 11425964 (Version 1)
Quarter: 2015Q3

REPORT INFORMATION
  Report Type: Spontaneous
  Country: US (occurrence: US)
  Receive Date: 20150821
  Receipt Date: 20150821
  Transmission Date: 20151125
  Serious: No
  Sender: FDA-Public Use
  Company Number: US-ELI_LILLY_AND_COMPANY-US201101000539

PATIENT
  Age: 83 Year
  Sex: Male

DRUGS (2)
  1. HUMULIN R [Suspect]
     Active Substance: INSULIN HUMAN
     Indication: DIABETES MELLITUS
     Dosage: UNK, AS NEEDED
     Dates: start: 2007
  2. LANTUS [Concomitant]
     Active Substance: INSULIN GLARGINE

REACTIONS (1)
  - Visual acuity reduced [Not Recovered/Not Resolved]

NARRATIVE: CASE EVENT DATE: 201010
